FAERS Safety Report 10712570 (Version 1)
Quarter: 2015Q1

REPORT INFORMATION
  Report Type: Spontaneous
  Country: US (occurrence: None)
  Receive Date: 20150114
  Receipt Date: 20150114
  Transmission Date: 20150721
  Serious: Yes (Hospitalization)
  Sender: FDA-Public Use
  Company Number: None

PATIENT
  Age: 44 Year
  Sex: Female

DRUGS (1)
  1. COPAXONE [Suspect]
     Active Substance: GLATIRAMER ACETATE
     Dosage: 20
     Dates: start: 20150103

REACTIONS (3)
  - Fatigue [None]
  - Urinary tract infection [None]
  - Tremor [None]

NARRATIVE: CASE EVENT DATE: 20140105
